FAERS Safety Report 13564167 (Version 1)
Quarter: 2017Q2

REPORT INFORMATION
  Report Type: Spontaneous
  Country: IT (occurrence: IT)
  Receive Date: 20170519
  Receipt Date: 20170519
  Transmission Date: 20170830
  Serious: Yes (Other)
  Sender: FDA-Public Use
  Company Number: IT-FRESENIUS KABI-FK201704270

PATIENT
  Age: 63 Year
  Sex: Female

DRUGS (2)
  1. DACARBAZINE (MANUFACTURER UNKNOWN) [Suspect]
     Active Substance: DACARBAZINE
     Indication: RETROPERITONEAL CANCER
     Route: 042
  2. DOXORUBICIN [Suspect]
     Active Substance: DOXORUBICIN
     Indication: RETROPERITONEAL CANCER
     Route: 040

REACTIONS (3)
  - Off label use [Unknown]
  - Mucosal inflammation [Unknown]
  - Neutropenia [Unknown]
